FAERS Safety Report 18679429 (Version 6)
Quarter: 2021Q1

REPORT INFORMATION
  Report Type: Report from Study
  Country: CL (occurrence: CL)
  Receive Date: 20201229
  Receipt Date: 20210303
  Transmission Date: 20210419
  Serious: Yes (Death, Hospitalization)
  Sender: FDA-Public Use
  Company Number: CL-EISAI MEDICAL RESEARCH-EC-2020-085931

PATIENT
  Age: 79 Year
  Sex: Male
  Weight: 80.5 kg

DRUGS (11)
  1. HYDROCHLOROTHIAZIDE. [Concomitant]
     Active Substance: HYDROCHLOROTHIAZIDE
     Dates: start: 20201214
  2. PEMBROLIZUMAB. [Suspect]
     Active Substance: PEMBROLIZUMAB
     Indication: MALIGNANT MELANOMA STAGE III
     Route: 041
     Dates: start: 20201202, end: 20201202
  3. AMLODIPINE [Concomitant]
     Active Substance: AMLODIPINE BESYLATE
     Dates: start: 201901
  4. INSULIN HUMAN ISOPHANE [Concomitant]
     Active Substance: INSULIN HUMAN
     Dates: start: 201501
  5. LENVATINIB [Suspect]
     Active Substance: LENVATINIB
     Indication: MALIGNANT MELANOMA STAGE III
     Route: 048
     Dates: start: 20201202, end: 20201217
  6. METFORMIN [Concomitant]
     Active Substance: METFORMIN HYDROCHLORIDE
     Dates: start: 200001
  7. LENVATINIB [Suspect]
     Active Substance: LENVATINIB
     Indication: MALIGNANT MELANOMA STAGE IV
  8. ATORVASTATIN [Concomitant]
     Active Substance: ATORVASTATIN
     Dates: start: 200001
  9. LOSARTAN POTASSIUM. [Concomitant]
     Active Substance: LOSARTAN POTASSIUM
     Dates: start: 201801
  10. PEMBROLIZUMAB. [Suspect]
     Active Substance: PEMBROLIZUMAB
     Indication: MALIGNANT MELANOMA STAGE IV
  11. ASPIRIN. [Concomitant]
     Active Substance: ASPIRIN
     Dates: start: 200001

REACTIONS (2)
  - COVID-19 pneumonia [Fatal]
  - Myositis [Not Recovered/Not Resolved]

NARRATIVE: CASE EVENT DATE: 20201221
